FAERS Safety Report 9641355 (Version 1)
Quarter: 2013Q4

REPORT INFORMATION
  Report Type: Spontaneous
  Country: US (occurrence: None)
  Receive Date: 20131022
  Receipt Date: 20131022
  Transmission Date: 20140711
  Serious: Yes (Other)
  Sender: FDA-Public Use
  Company Number: None

PATIENT
  Age: 57 Year
  Sex: Male
  Weight: 111 kg

DRUGS (10)
  1. CUBICIN [Suspect]
     Indication: CELLULITIS
     Route: 042
     Dates: start: 20130903, end: 20131008
  2. ASPIRIN [Concomitant]
  3. ATORVASTATIN [Concomitant]
  4. LISINOPRIL [Concomitant]
  5. METFORMIN [Concomitant]
  6. METOPROLOL SUCCINATE [Concomitant]
  7. AMLODIPINE [Concomitant]
  8. CIPROFLOXACIN [Concomitant]
  9. INSULIN GLARGINE [Concomitant]
  10. INSULIN LISPRO [Concomitant]

REACTIONS (4)
  - Dyspnoea [None]
  - Anxiety [None]
  - Pneumonia [None]
  - Pneumonitis [None]
